FAERS Safety Report 16036680 (Version 1)
Quarter: 2019Q1

REPORT INFORMATION
  Report Type: Spontaneous
  Country: US (occurrence: US)
  Receive Date: 20190305
  Receipt Date: 20190305
  Transmission Date: 20190418
  Serious: No
  Sender: FDA-Public Use
  Company Number: US-IMPAX LABORATORIES, LLC-2018-IPXL-03053

PATIENT
  Age: 89 Year
  Sex: Male
  Weight: 63 kg

DRUGS (38)
  1. RYTARY [Suspect]
     Active Substance: CARBIDOPA\LEVODOPA
     Dosage: 2 PILLS (AT 9:00 PM) AND 2 PILLS AT 2 AM (MIDDLE NIGHT)
     Route: 065
     Dates: start: 20181002, end: 20181002
  2. CARBIDOPA/LEVODOPA [Concomitant]
     Active Substance: CARBIDOPA\LEVODOPA
     Indication: PARKINSON^S DISEASE
     Dosage: 50/200, ONE AT BEDTIME
     Route: 065
  3. FLUDROCORTISONE [Concomitant]
     Active Substance: FLUDROCORTISONE
     Indication: PRODUCT USED FOR UNKNOWN INDICATION
     Dosage: 1/2 MG, ONE TABLET EVERY MORNING AT 8 AM
     Route: 048
  4. VITAMIN C [Concomitant]
     Active Substance: ASCORBIC ACID
     Indication: PRODUCT USED FOR UNKNOWN INDICATION
     Dosage: 250 MG, ONE CAPSULE/TABLET ONCE A DAY
     Route: 048
  5. RYTARY [Suspect]
     Active Substance: CARBIDOPA\LEVODOPA
     Dosage: 48.75/195 MG, (TWO AND QUARTER PILLS AT 8 PM, 1 AM, 3 PILLS, 7 PM, 1PM)
     Route: 048
     Dates: start: 20180915, end: 20180916
  6. RYTARY [Suspect]
     Active Substance: CARBIDOPA\LEVODOPA
     Dosage: 2.25 PILLS (AT 9:00 PM) AND 2 PILLS AT 2 AM (MIDDLE NIGHT)
     Route: 065
     Dates: start: 20181004, end: 20181004
  7. CARBIDOPA/LEVODOPA [Concomitant]
     Active Substance: CARBIDOPA\LEVODOPA
     Dosage: 25/100 MG, 2 TABLETS 6 TIMES A DAY, AT 2AM, 5 AM, 8 AM, 11AM, 2 PM,  5 PM, 8PM, AND BEDTIME
     Route: 065
  8. MIDODRINE [Concomitant]
     Active Substance: MIDODRINE
     Dosage: UNK
     Route: 065
     Dates: start: 20180923
  9. RANITIDINE. [Concomitant]
     Active Substance: RANITIDINE
     Indication: PRODUCT USED FOR UNKNOWN INDICATION
     Dosage: 150 MG, ONE TABLET AT 8 PM
     Route: 048
  10. VITAMIN B12 [Concomitant]
     Active Substance: CYANOCOBALAMIN
     Indication: PRODUCT USED FOR UNKNOWN INDICATION
     Dosage: 1000 MG, ONE TABLET WITH BREAKFAST AT 8 AM
     Route: 048
  11. CALCIUM [Concomitant]
     Active Substance: CALCIUM
     Indication: PRODUCT USED FOR UNKNOWN INDICATION
     Dosage: ONE CALCIUM AT 8 AM, ONE CALCIUM AT 11 PM, ONE CALCIUM AT 5PM AND ONE CALCIUM AT BEDTIME
     Route: 065
  12. RYTARY [Suspect]
     Active Substance: CARBIDOPA\LEVODOPA
     Dosage: 48.75/195 MG, 2 CAPSULES AT 2:00 AM, 3 CAPSULES 8:00 AM, 3 CAPSULES 2:00 PM, 2 CAPSULES 8:00 PM
     Route: 048
     Dates: start: 201809, end: 201809
  13. RYTARY [Suspect]
     Active Substance: CARBIDOPA\LEVODOPA
     Dosage: 2.25 PILLS (AT 8:30 PM) AND 3 PILLS AT 1 AM (MIDDLE NIGHT)
     Route: 065
     Dates: start: 20180928, end: 20180928
  14. RYTARY [Suspect]
     Active Substance: CARBIDOPA\LEVODOPA
     Dosage: 3 PILLS (AT 8:00 PM) AND 2 PILLS AT 2 AM (MIDDLE NIGHT)
     Route: 065
     Dates: start: 20181001, end: 20181001
  15. COQ10 [Concomitant]
     Active Substance: UBIDECARENONE
     Indication: PRODUCT USED FOR UNKNOWN INDICATION
     Dosage: ONE GEL CAPSULE WITH BREAKFAST AT 8 AM
     Route: 048
  16. TROSPIUM CHLORIDE. [Concomitant]
     Active Substance: TROSPIUM CHLORIDE
     Indication: PRODUCT USED FOR UNKNOWN INDICATION
     Dosage: 20 MG, ONE TABLET TWICE A DAY
     Route: 048
  17. RYTARY [Suspect]
     Active Substance: CARBIDOPA\LEVODOPA
     Dosage: UNK, TWO PILLS FIVE TIMES A DAY, (AT 7 AM, 12 NOON, 5 PM, 10 PM AND 2 AM)
     Route: 065
     Dates: start: 20181005
  18. MIDODRINE [Concomitant]
     Active Substance: MIDODRINE
     Indication: PRODUCT USED FOR UNKNOWN INDICATION
     Dosage: 5 MG, 2 TABLET (5 AM), ONE TABLET 11PM, ONE TABLET 2 PM AND ONE AT BEDTIME
     Route: 048
  19. STOOL SOFTENER (DOCUSATE) [Concomitant]
     Active Substance: DOCUSATE
     Indication: PRODUCT USED FOR UNKNOWN INDICATION
     Dosage: UNK
     Route: 065
  20. MIRALAX [Concomitant]
     Active Substance: POLYETHYLENE GLYCOL 3350
     Indication: PRODUCT USED FOR UNKNOWN INDICATION
     Dosage: ONE LEVEL TABLESPOON, TWO TIMES PER DAY (MORNING/BREAKFAST AND NOON/LUNCH)
     Route: 048
  21. TRAZODONE [Concomitant]
     Active Substance: TRAZODONE HYDROCHLORIDE
     Indication: PRODUCT USED FOR UNKNOWN INDICATION
     Dosage: 1/2 AT BEDTIME
     Route: 065
  22. RYTARY [Suspect]
     Active Substance: CARBIDOPA\LEVODOPA
     Dosage: 2.5 PILLS (AT 7:30 PM) AND 2 PILLS AT 1 AM (MIDDLE NIGHT)
     Route: 065
     Dates: start: 20180929, end: 20180929
  23. RYTARY [Suspect]
     Active Substance: CARBIDOPA\LEVODOPA
     Dosage: 2.25 PILLS (AT 9:00 PM) AND 2 PILLS AT 2 AM (MIDDLE NIGHT)
     Route: 065
     Dates: start: 20181003, end: 20181003
  24. DOPAMINE [Concomitant]
     Active Substance: DOPAMINE\DOPAMINE HYDROCHLORIDE
     Indication: PRODUCT USED FOR UNKNOWN INDICATION
     Dosage: THREE PILLS DAILY
     Route: 065
  25. TAMSULOSIN [Concomitant]
     Active Substance: TAMSULOSIN
     Indication: PRODUCT USED FOR UNKNOWN INDICATION
     Dosage: 0.4 MG, ONE CAPSULE AT 8PM (HALF AN HOUR AFTER DINNER)
     Route: 065
  26. GABAPENTIN. [Concomitant]
     Active Substance: GABAPENTIN
     Indication: PRODUCT USED FOR UNKNOWN INDICATION
     Dosage: 300 MG, ONE CAPSULE THREE TIMES A DAY
     Route: 048
  27. TYLENOL [Concomitant]
     Active Substance: ACETAMINOPHEN
     Indication: PRODUCT USED FOR UNKNOWN INDICATION
     Dosage: UNK, AS NEEDED
     Route: 065
  28. RYTARY [Suspect]
     Active Substance: CARBIDOPA\LEVODOPA
     Indication: PARKINSON^S DISEASE
     Dosage: 48.75/195 MG, THREE CAPSULES, FOUR TIMES DAILY (AT 2:00 AM, 8:00 AM, 2:00 PM, 8:00 PM)
     Route: 048
     Dates: start: 20180908, end: 20180908
  29. RYTARY [Suspect]
     Active Substance: CARBIDOPA\LEVODOPA
     Dosage: 48.75/195 MG, (1 PILLS AT 1 AM, WITH 3 PILLS AT 6 PM)
     Route: 048
     Dates: start: 20180914, end: 20180914
  30. DOPAMINE [Concomitant]
     Active Substance: DOPAMINE\DOPAMINE HYDROCHLORIDE
     Dosage: UNK, DOSE REDUCED (ONE PILL IN THE EVENING)
     Route: 065
  31. CALCIUM +VIT D [Concomitant]
     Active Substance: CALCIUM\VITAMIN D
     Indication: PRODUCT USED FOR UNKNOWN INDICATION
     Dosage: 220MG, 200 IU, TABLET FOUR TIMES A DAY
     Route: 048
  32. ASPIRIN. [Concomitant]
     Active Substance: ASPIRIN
     Indication: PRODUCT USED FOR UNKNOWN INDICATION
     Dosage: 81 MG, ONE TABLET AT BEDTIME
     Route: 048
  33. VITAMIN D3 [Concomitant]
     Active Substance: CHOLECALCIFEROL
     Indication: PRODUCT USED FOR UNKNOWN INDICATION
     Dosage: 2000 IU ONE GEL CAPSULE WITH BREAKFAST AT 8 AM
     Route: 048
  34. RYTARY [Suspect]
     Active Substance: CARBIDOPA\LEVODOPA
     Dosage: 48.75/195 MG, (2 PILLS AT 1AM, WITH 3 AT 7 AM, 3 AT 1 PM, 7 PM)
     Route: 048
     Dates: start: 20180913, end: 20180913
  35. ALENDRONATE [Concomitant]
     Active Substance: ALENDRONATE SODIUM
     Indication: OSTEOPOROSIS
     Dosage: 70 MG, ONE TABLET ONCE A WEEK ON SUNDAY AM
     Route: 048
  36. CYMBALTA [Concomitant]
     Active Substance: DULOXETINE HYDROCHLORIDE
     Indication: PRODUCT USED FOR UNKNOWN INDICATION
     Dosage: 20 MG, ONE CAPSULE DAILY AT 5 PM
     Route: 048
  37. MAGNESIUM TAURATE [Concomitant]
     Indication: PRODUCT USED FOR UNKNOWN INDICATION
     Dosage: 150 MG, ONE CAPSULE THREE TIMES DAILY
     Route: 065
  38. VITAMIN B3 [Concomitant]
     Active Substance: NIACIN
     Indication: PRODUCT USED FOR UNKNOWN INDICATION
     Dosage: ONE AT 8 AM
     Route: 065

REACTIONS (18)
  - Freezing phenomenon [Recovering/Resolving]
  - Balance disorder [Recovering/Resolving]
  - Abnormal behaviour [Recovering/Resolving]
  - Confusional state [Recovering/Resolving]
  - Headache [Recovered/Resolved]
  - Musculoskeletal stiffness [Recovering/Resolving]
  - Somnolence [Recovering/Resolving]
  - Hypokinesia [Recovering/Resolving]
  - Delusion [Recovered/Resolved]
  - Urinary incontinence [Recovering/Resolving]
  - Feeling abnormal [Recovering/Resolving]
  - Hypotension [Recovering/Resolving]
  - Gait disturbance [Recovering/Resolving]
  - Fall [Unknown]
  - Muscle rigidity [Recovering/Resolving]
  - Dementia [Recovering/Resolving]
  - Tremor [Recovering/Resolving]
  - Dizziness [Recovering/Resolving]

NARRATIVE: CASE EVENT DATE: 20180909
